FAERS Safety Report 25572146 (Version 1)
Quarter: 2025Q3

REPORT INFORMATION
  Report Type: Spontaneous
  Country: GB (occurrence: GB)
  Receive Date: 20250717
  Receipt Date: 20250717
  Transmission Date: 20251021
  Serious: Yes (Other)
  Sender: ELI LILLY AND COMPANY
  Company Number: GB-MHRA-EMIS-2746-c6a19962-9bcb-4e4d-9a74-df106abb336b

PATIENT
  Age: 58 Year
  Sex: Male
  Weight: 96 kg

DRUGS (4)
  1. MOUNJARO [Suspect]
     Active Substance: TIRZEPATIDE
     Indication: Product used for unknown indication
     Dosage: 0.6 ML, WEEKLY (1/W)
     Route: 058
     Dates: start: 20250414, end: 20250704
  2. TRIMOVATE [CHLORTETRACYCLINE HYDROCHLORIDE;CL [Concomitant]
     Indication: Product used for unknown indication
     Dosage: 30 G, BID (APPLY THINLY TWICE A DAY FOR UP TO 2 WEEKS)
     Dates: start: 20250519, end: 20250701
  3. AMOXICILLIN [Concomitant]
     Active Substance: AMOXICILLIN
     Indication: Product used for unknown indication
     Dosage: UNK UNK, EVERY 8 HRS
     Dates: start: 20250606
  4. ALOGLIPTIN [Concomitant]
     Active Substance: ALOGLIPTIN
     Indication: Product used for unknown indication
     Dosage: 25 MG, DAILY
     Dates: start: 20250704

REACTIONS (2)
  - Mood swings [Unknown]
  - Depressed mood [Unknown]
